FAERS Safety Report 11628931 (Version 1)
Quarter: 2015Q4

REPORT INFORMATION
  Report Type: Spontaneous
  Country: US (occurrence: US)
  Receive Date: 20151014
  Receipt Date: 20151014
  Transmission Date: 20160304
  Serious: Yes (Hospitalization)
  Sender: FDA-Public Use
  Company Number: US-ELI_LILLY_AND_COMPANY-US201510003056

PATIENT
  Sex: Male

DRUGS (11)
  1. STRATTERA [Suspect]
     Active Substance: ATOMOXETINE HYDROCHLORIDE
     Indication: ATTENTION DEFICIT/HYPERACTIVITY DISORDER
     Dosage: UNK, UNKNOWN
     Route: 065
  2. LITHIUM. [Suspect]
     Active Substance: LITHIUM
     Indication: BIPOLAR DISORDER
     Dosage: UNK, UNKNOWN
     Route: 065
     Dates: start: 201503
  3. LITHIUM. [Suspect]
     Active Substance: LITHIUM
     Dosage: 300 MG, QD
     Route: 065
     Dates: start: 20150826
  4. ABILIFY [Concomitant]
     Active Substance: ARIPIPRAZOLE
     Dosage: 2.5 MG, QD
     Route: 048
     Dates: start: 20150610
  5. ABILIFY MAINTENA [Concomitant]
     Active Substance: ARIPIPRAZOLE
     Indication: BIPOLAR DISORDER
     Dosage: 400 MG, MONTHLY (1/M)
     Route: 065
     Dates: start: 20150805
  6. ABILIFY [Concomitant]
     Active Substance: ARIPIPRAZOLE
     Dosage: 15 MG, QD
     Route: 048
     Dates: end: 20150819
  7. ABILIFY [Concomitant]
     Active Substance: ARIPIPRAZOLE
     Dosage: 7.5 MG, QD
     Route: 048
     Dates: start: 20150615
  8. LITHIUM. [Suspect]
     Active Substance: LITHIUM
     Dosage: 450 MG, BID
     Route: 065
  9. ABILIFY [Concomitant]
     Active Substance: ARIPIPRAZOLE
     Indication: AFFECTIVE DISORDER
     Dosage: 5 MG, QD
     Route: 048
     Dates: start: 201408
  10. LITHIUM. [Suspect]
     Active Substance: LITHIUM
     Dosage: 300 MG, BID
     Route: 065
     Dates: start: 20150819
  11. ABILIFY [Concomitant]
     Active Substance: ARIPIPRAZOLE
     Dosage: 2 MG, QD
     Route: 048
     Dates: start: 20150604

REACTIONS (10)
  - Anger [Unknown]
  - Tremor [Not Recovered/Not Resolved]
  - Psychomotor hyperactivity [Not Recovered/Not Resolved]
  - Affect lability [Recovered/Resolved]
  - Anxiety [Not Recovered/Not Resolved]
  - Drug dose omission [Unknown]
  - Bipolar disorder [Unknown]
  - Weight increased [Unknown]
  - Drug level below therapeutic [Unknown]
  - Feeling jittery [Not Recovered/Not Resolved]
